FAERS Safety Report 10189231 (Version 1)
Quarter: 2014Q2

REPORT INFORMATION
  Report Type: Spontaneous
  Country: DE (occurrence: DE)
  Receive Date: 20140522
  Receipt Date: 20140522
  Transmission Date: 20141212
  Serious: Yes (Congenital Anomaly, Other)
  Sender: FDA-Public Use
  Company Number: GXKR2014DE001963

PATIENT
  Age: 1 Day
  Sex: Female
  Weight: 4.27 kg

DRUGS (1)
  1. PAROXETINE [Suspect]
     Indication: DEPRESSION
     Dosage: 40 [MG/D ]/ UNTIL GW 20: 20 MG/D; GW 20 TO 28: 35 MG/D, AFTER GW 28: 40 MG/D
     Route: 064
     Dates: start: 20130228, end: 20131124

REACTIONS (4)
  - Neonatal respiratory distress syndrome [Recovered/Resolved]
  - Drug withdrawal syndrome [Recovered/Resolved]
  - Large for dates baby [Unknown]
  - Atrial septal defect [Unknown]
